FAERS Safety Report 6591574-3 (Version None)
Quarter: 2010Q1

REPORT INFORMATION
  Report Type: 
  Country: None (occurrence: None)
  Receive Date: 20100221
  Receipt Date: 20090924
  Transmission Date: 20100710
  Serious: No
  Sender: FDA-Public Use
  Company Number: US-ALLERGAN-0902126US

PATIENT
  Age: 72 Year
  Sex: Female

DRUGS (6)
  1. BOTOX COSMETIC [Suspect]
     Indication: SKIN WRINKLING
     Dosage: 45 UNITS, SINGLE
     Route: 030
     Dates: start: 20090216, end: 20090216
  2. ALCOHOL [Concomitant]
     Indication: REMOVAL OF INERT MATTER FROM SKIN OR SUBCUTANEOUS TISSUE
     Dosage: UNK, SINGLE
     Route: 061
     Dates: start: 20090216, end: 20090216
  3. LIDOCAINE/BETACAINE [Concomitant]
     Indication: LOCAL ANAESTHESIA
     Dosage: UNK, SINGLE
     Route: 061
     Dates: start: 20090216, end: 20090216
  4. LUNESTA [Concomitant]
     Dosage: ROUTINELY
  5. PLAVIX [Concomitant]
     Dosage: 75 MG, QD
     Route: 048
  6. LEXAPRO [Concomitant]
     Dosage: 10 MG, UNK

REACTIONS (9)
  - ANXIETY [None]
  - DIARRHOEA [None]
  - ERYTHEMA [None]
  - EYELID OEDEMA [None]
  - EYELID PTOSIS [None]
  - FACIAL PARESIS [None]
  - PRURITUS [None]
  - SWELLING FACE [None]
  - VISION BLURRED [None]
